FAERS Safety Report 5017206-3 (Version None)
Quarter: 2006Q2

REPORT INFORMATION
  Report Type: 
  Country: None (occurrence: None)
  Receive Date: 20060602
  Receipt Date: 20060524
  Transmission Date: 20061013
  Serious: Yes (Other)
  Sender: FDA-Public Use
  Company Number: GB-ABBOTT-06P-167-0334404-00

PATIENT
  Sex: Male
  Weight: 4.29 kg

DRUGS (1)
  1. EPILIM TABLETS [Suspect]
     Indication: DRUG EXPOSURE DURING PREGNANCY

REACTIONS (3)
  - ABNORMAL BEHAVIOUR [None]
  - LEARNING DISORDER [None]
  - UMBILICAL HERNIA [None]
